FAERS Safety Report 4877631-8 (Version None)
Quarter: 2006Q1

REPORT INFORMATION
  Report Type: 
  Country: None (occurrence: None)
  Receive Date: 20060109
  Receipt Date: 20060109
  Transmission Date: 20060701
  Serious: No
  Sender: FDA-Public Use
  Company Number: None

PATIENT
  Age: 51 Year
  Sex: Female
  Weight: 72.5755 kg

DRUGS (4)
  1. LEVAQUIN [Suspect]
     Indication: ABDOMINAL PAIN
     Dosage: 750 MGS DAILY PO
     Route: 048
     Dates: start: 20051019, end: 20051019
  2. LEVAQUIN [Suspect]
     Indication: PYREXIA
     Dosage: 750 MGS DAILY PO
     Route: 048
     Dates: start: 20051019, end: 20051019
  3. LEVAQUIN [Suspect]
     Indication: ABDOMINAL PAIN
     Dosage: 750 MGS DAILY PO
     Route: 048
     Dates: start: 20051015, end: 20051019
  4. LEVAQUIN [Suspect]
     Indication: PYREXIA
     Dosage: 750 MGS DAILY PO
     Route: 048
     Dates: start: 20051015, end: 20051019

REACTIONS (6)
  - ASTHENIA [None]
  - CHILLS [None]
  - PAIN IN EXTREMITY [None]
  - SHOULDER PAIN [None]
  - TENDON RUPTURE [None]
  - TENDONITIS [None]
